FAERS Safety Report 4617092-7 (Version None)
Quarter: 2005Q1

REPORT INFORMATION
  Report Type: 
  Country: None (occurrence: None)
  Receive Date: 20050323
  Receipt Date: 20050114
  Transmission Date: 20050727
  Serious: Yes (Other)
  Sender: FDA-Public Use
  Company Number: JP-MERCK-0501USA03207

PATIENT
  Age: 79 Year
  Sex: Male

DRUGS (13)
  1. VASOLAN [Concomitant]
     Route: 042
     Dates: start: 20050105, end: 20050105
  2. HORIZON [Concomitant]
     Route: 042
     Dates: start: 20050105, end: 20050105
  3. PREDONINE [Concomitant]
     Route: 042
     Dates: start: 20050107, end: 20050118
  4. PEPCID [Suspect]
     Indication: PROPHYLAXIS
     Route: 041
     Dates: start: 20050105
  5. PEPCID [Suspect]
     Indication: STRESS
     Route: 041
     Dates: start: 20050105
  6. DORMICUM (MIDAZOLAM) [Suspect]
     Indication: SEDATION
     Route: 041
     Dates: start: 20050105, end: 20050112
  7. DORMICUM (MIDAZOLAM) [Suspect]
     Indication: INTUBATION
     Route: 041
     Dates: start: 20050105, end: 20050112
  8. METHYLPREDNISOLONE SODIUM SUCCINATE [Concomitant]
     Route: 042
     Dates: start: 20050104, end: 20050106
  9. CARBENIN [Concomitant]
     Route: 041
     Dates: start: 20050104, end: 20050114
  10. BISOLVON [Concomitant]
     Route: 042
     Dates: start: 20050104, end: 20050106
  11. HANP [Concomitant]
     Route: 042
     Dates: start: 20050105, end: 20050107
  12. LASIX [Concomitant]
     Route: 042
     Dates: start: 20050105, end: 20050106
  13. RYTHMODAN [Concomitant]
     Route: 042
     Dates: start: 20050105, end: 20050105

REACTIONS (1)
  - RHABDOMYOLYSIS [None]
